FAERS Safety Report 9440925 (Version 1)
Quarter: 2013Q3

REPORT INFORMATION
  Report Type: Report from Study
  Country: US (occurrence: US)
  Receive Date: 20130805
  Receipt Date: 20130805
  Transmission Date: 20140515
  Serious: Yes (Other)
  Sender: FDA-Public Use
  Company Number: PHHO2013US010112

PATIENT
  Age: 75 Year
  Sex: Male
  Weight: 81.6 kg

DRUGS (16)
  1. AFINITOR [Suspect]
     Indication: PROSTATE CANCER
     Dosage: 2.5 MG, UNK
     Route: 048
     Dates: start: 20130725, end: 20130731
  2. BEVACIZUMAB [Suspect]
     Indication: PROSTATE CANCER
     Dosage: 15 MG/KG, (1250 IVPB)
     Route: 042
     Dates: start: 20130724, end: 20130724
  3. TAXOTERE [Suspect]
     Indication: PROSTATE CANCER
     Dosage: 75 MG/M2, (150 MG)
     Route: 042
     Dates: start: 20130724, end: 20130724
  4. DIOVAN [Concomitant]
     Dosage: UNK
  5. LIPITOR [Concomitant]
     Dosage: UNK
  6. NORVASC [Concomitant]
     Dosage: UNK
  7. TRIPLEX [Concomitant]
     Dosage: UNK
  8. SYNTHROID [Concomitant]
     Dosage: UNK
  9. LUPRON [Concomitant]
     Dosage: UNK
  10. FISH OIL [Concomitant]
     Dosage: UNK
  11. CALCIUM CITRATE [Concomitant]
     Dosage: UNK
  12. VITAMIN B-12 [Concomitant]
     Dosage: UNK
  13. TYLENOL [Concomitant]
     Dosage: UNK
  14. ZOFRAN [Concomitant]
     Dosage: UNK
  15. COMPAZINE [Concomitant]
     Dosage: UNK
  16. BABY ASPIRIN [Concomitant]
     Dosage: UNK

REACTIONS (1)
  - Febrile neutropenia [Unknown]
